FAERS Safety Report 6311025-3 (Version None)
Quarter: 2009Q3

REPORT INFORMATION
  Report Type: 
  Country: None (occurrence: None)
  Receive Date: 20090817
  Receipt Date: 20090807
  Transmission Date: 20100115
  Serious: Yes (Congenital Anomaly)
  Sender: FDA-Public Use
  Company Number: US-BIOGENIDEC-2009BI025380

PATIENT
  Age: 0 Day
  Sex: Female
  Weight: 2 kg

DRUGS (1)
  1. AVONEX [Suspect]
     Indication: DRUG EXPOSURE DURING PREGNANCY
     Route: 064
     Dates: start: 20030415, end: 20080925

REACTIONS (2)
  - MATERNAL DRUGS AFFECTING FOETUS [None]
  - UMBILICAL CORD VASCULAR DISORDER [None]
